FAERS Safety Report 8105402-8 (Version None)
Quarter: 2012Q1

REPORT INFORMATION
  Report Type: 
  Country: None (occurrence: None)
  Receive Date: 20120201
  Receipt Date: 20120123
  Transmission Date: 20120608
  Serious: Yes (Hospitalization)
  Sender: FDA-Public Use
  Company Number: ES-ASTRAZENECA-2012SE05050

PATIENT
  Age: 58 Year
  Sex: Male

DRUGS (11)
  1. INDAPAMIDE [Concomitant]
     Indication: HYPERTENSION
     Route: 048
     Dates: start: 20060109
  2. ESCITALOPRAM [Interacting]
     Route: 048
     Dates: start: 20110101, end: 20111012
  3. ATACAND HCT [Suspect]
     Indication: HYPERTENSION
     Dosage: 32+25 MG, 1 DF DAILY
     Route: 048
     Dates: start: 20110101, end: 20111012
  4. ATENOLOL [Concomitant]
     Route: 048
  5. ATORVASTATIN [Concomitant]
     Indication: DYSLIPIDAEMIA
     Route: 048
  6. PANTOPRAZOLE [Concomitant]
     Route: 048
  7. CLOPIDOGREL [Concomitant]
     Route: 048
  8. NOVORAPID FLEXPEN [Concomitant]
     Indication: DIABETES MELLITUS
     Dosage: 100U/ML INJECTABLE SOLUTION IN A PREFILLED PEN 5, 24 IU DAILY.
     Route: 058
  9. VALDOXAN [Concomitant]
     Route: 048
     Dates: end: 20111012
  10. LEVEMIR [Concomitant]
     Indication: DIABETES MELLITUS
     Dosage: 100U/ML , 5 PREFILLED PENS, 3 ML INNOLET , 24 IU DAILY
     Route: 058
  11. VENLAFAXINE [Concomitant]
     Indication: DEPRESSION

REACTIONS (2)
  - HYPONATRAEMIA [None]
  - DRUG INTERACTION [None]
